FAERS Safety Report 7058221-8 (Version None)
Quarter: 2010Q4

REPORT INFORMATION
  Report Type: 
  Country: None (occurrence: None)
  Receive Date: 20101022
  Receipt Date: 20101014
  Transmission Date: 20110411
  Serious: Yes (Hospitalization)
  Sender: FDA-Public Use
  Company Number: FR-WYE-H18224410

PATIENT
  Sex: Female

DRUGS (7)
  1. INIPOMP [Suspect]
     Route: 048
     Dates: start: 20071019
  2. SKENAN [Suspect]
     Route: 048
     Dates: start: 20071018
  3. CEBUTID [Concomitant]
     Dosage: UNKNOWN
     Route: 048
  4. ASCORBIC ACID/HERBAL EXTRACTS NOS/HESPERIDIN METHYL CHALCONE/PANCREAS [Concomitant]
     Dosage: UNKNOWN
     Route: 048
  5. BROMAZEPAM [Concomitant]
     Dosage: UNKNOWN
     Route: 048
  6. ARIXTRA [Suspect]
     Indication: THROMBOSIS PROPHYLAXIS
     Route: 042
     Dates: start: 20071017, end: 20071021
  7. KETOPROFEN [Suspect]
     Route: 048
     Dates: start: 20071019

REACTIONS (1)
  - PHLEBITIS [None]
